FAERS Safety Report 4469705-0 (Version None)
Quarter: 2004Q4

REPORT INFORMATION
  Report Type: 
  Country: None (occurrence: None)
  Receive Date: 20041008
  Receipt Date: 20041005
  Transmission Date: 20050328
  Serious: Yes (Other)
  Sender: FDA-Public Use
  Company Number: NZ-MERCK-0410NZL00036

PATIENT
  Age: 78 Year
  Sex: Female

DRUGS (6)
  1. AMAZIDE [Concomitant]
     Route: 048
  2. CARTIA (ASPIRIN) [Concomitant]
     Route: 048
  3. CALCIUM (UNSPECIFIED) [Concomitant]
     Route: 048
  4. LOSEC (OMEPRAZOLE) [Concomitant]
     Route: 048
  5. VIOXX [Suspect]
     Indication: ANALGESIC EFFECT
     Route: 048
     Dates: start: 20020101
  6. LIPEX [Concomitant]
     Route: 048

REACTIONS (4)
  - CEREBROVASCULAR ACCIDENT [None]
  - HYPERTENSION [None]
  - PALPITATIONS [None]
  - POST PROCEDURAL COMPLICATION [None]
